FAERS Safety Report 7971037-0 (Version None)
Quarter: 2011Q4

REPORT INFORMATION
  Report Type: 
  Country: None (occurrence: None)
  Receive Date: 20111212
  Receipt Date: 20111212
  Transmission Date: 20120403
  Serious: Yes (Life-Threatening)
  Sender: FDA-Public Use
  Company Number: None

PATIENT
  Age: 65 Year
  Sex: Female
  Weight: 56.699 kg

DRUGS (1)
  1. VENLAFAXINE HCL EXTENDED-RELEASE [Suspect]
     Indication: MENOPAUSAL SYMPTOMS
     Dosage: 75 MG.
     Route: 048

REACTIONS (2)
  - MENTAL DISORDER [None]
  - HYPERHIDROSIS [None]
